FAERS Safety Report 5241772-6 (Version None)
Quarter: 2007Q1

REPORT INFORMATION
  Report Type: 
  Country: None (occurrence: None)
  Receive Date: 20070220
  Receipt Date: 20070209
  Transmission Date: 20070707
  Serious: Yes (Hospitalization)
  Sender: FDA-Public Use
  Company Number: IT-SANOFI-SYNTHELABO-A06200700065

PATIENT
  Sex: Male

DRUGS (7)
  1. TRIATEC [Concomitant]
     Indication: DRUG USE FOR UNKNOWN INDICATION
     Route: 048
     Dates: start: 20060630, end: 20070101
  2. TRIATEC [Concomitant]
     Route: 048
     Dates: start: 20060630, end: 20070101
  3. TRIATEC [Concomitant]
     Route: 048
     Dates: start: 20060630, end: 20070101
  4. ASPIRIN [Concomitant]
     Indication: DRUG USE FOR UNKNOWN INDICATION
     Route: 048
     Dates: start: 20060131, end: 20070101
  5. ASPIRIN [Concomitant]
     Route: 048
     Dates: start: 20060131, end: 20070101
  6. ASPIRIN [Concomitant]
     Route: 048
     Dates: start: 20060131, end: 20070101
  7. PLAVIX [Suspect]
     Indication: ACUTE MYOCARDIAL INFARCTION
     Route: 048
     Dates: start: 20060602, end: 20070101

REACTIONS (1)
  - JAUNDICE ACHOLURIC [None]
